FAERS Safety Report 17890245 (Version 1)
Quarter: 2020Q2

REPORT INFORMATION
  Report Type: Spontaneous
  Country: CA (occurrence: CA)
  Receive Date: 20200612
  Receipt Date: 20200612
  Transmission Date: 20200714
  Serious: Yes (Hospitalization)
  Sender: FDA-Public Use
  Company Number: CA-PFIZER INC-2020227467

PATIENT
  Sex: Female

DRUGS (34)
  1. ATORVASTATIN [Concomitant]
     Active Substance: ATORVASTATIN
     Dosage: 10 MG, 1 EVERY 24 HOURS
     Route: 048
  2. CHOLECALCIFEROL [Concomitant]
     Active Substance: CHOLECALCIFEROL
     Dosage: 1 DF, 1 EVERY 1 WEEKS
     Route: 048
  3. FLUOXETINE [Concomitant]
     Active Substance: FLUOXETINE HYDROCHLORIDE
     Dosage: 40 MG, 1 EVERY 24 HOURS
     Route: 048
  4. SALBUTAMOL [Concomitant]
     Active Substance: ALBUTEROL
     Indication: WHEEZING
     Dosage: 100 UG, 2 EVERY 1 DAYS
     Route: 055
  5. BACLOFEN. [Concomitant]
     Active Substance: BACLOFEN
     Dosage: 5 MG, 3 EVERY 1 DAYS
     Route: 048
  6. HYDROCORTISONE. [Concomitant]
     Active Substance: HYDROCORTISONE
     Dosage: 3 EVERY 1 DAYS
     Route: 061
  7. GABAPENTIN. [Suspect]
     Active Substance: GABAPENTIN
     Dosage: 2 DF, 3 EVERY 1 DAYS
     Route: 048
  8. HYDROMORPHONE [Suspect]
     Active Substance: HYDROMORPHONE
     Dosage: 4 MG, 4 EVERY 1 DAYS
     Route: 048
  9. AA CLOZAPINE [Suspect]
     Active Substance: CLOZAPINE
     Indication: SCHIZOAFFECTIVE DISORDER
     Dosage: 3 DF, 1 EVERY 1 DAYS
     Route: 048
  10. ALENDRONATE SODIUM. [Concomitant]
     Active Substance: ALENDRONATE SODIUM
     Dosage: 70 MG, 1 EVERY 1 WEEKS
     Route: 048
  11. IPRATROPIUM [Concomitant]
     Active Substance: IPRATROPIUM
     Dosage: 40 UG, 4 EVERY 1 DAYS
     Route: 055
  12. LOXAPINE. [Concomitant]
     Active Substance: LOXAPINE
     Dosage: 3 DF, 2 EVERY 1 DAYS
     Route: 048
  13. PANTOPRAZOLE [Concomitant]
     Active Substance: PANTOPRAZOLE
     Dosage: 40 MG, 1 EVERY 24 HOURS
     Route: 048
  14. BECLOMETHASONE [Concomitant]
     Active Substance: BECLOMETHASONE
     Dosage: 50 UG, 2 EVERY 1 DAYS
     Route: 045
  15. BUPROPION. [Concomitant]
     Active Substance: BUPROPION
     Dosage: 150 MG, 1 EVERY 24 HOURS
     Route: 048
  16. INSULIN (BEEF) [Concomitant]
     Dosage: 3 EVERY 1 DAYS
     Route: 058
  17. NAPROXEN. [Concomitant]
     Active Substance: NAPROXEN
     Dosage: 250 MG, 2 EVERY 1 DAYS
     Route: 048
  18. AA CLOZAPINE [Suspect]
     Active Substance: CLOZAPINE
     Dosage: 3 DF, 1 EVERY 1 DAYS
     Route: 048
  19. ASA [Concomitant]
     Active Substance: ASPIRIN
     Dosage: 1 DF, 1 EVERY 24 HOURS
     Route: 048
  20. BUDESONIDE/FORMOTEROL [Concomitant]
     Active Substance: BUDESONIDE\FORMOTEROL
     Dosage: 1 DF, 2 EVERY 1 DAYS
     Route: 055
  21. FUSIDIC ACID [Concomitant]
     Active Substance: FUSIDIC ACID
     Dosage: 3 EVERY 1 DAYS
     Route: 061
  22. GABAPENTIN. [Suspect]
     Active Substance: GABAPENTIN
     Dosage: 500 MG, 1 EVERY 1 DAYS
     Route: 048
  23. LOXAPINE. [Concomitant]
     Active Substance: LOXAPINE
     Dosage: 5 MG, 2 EVERY 1 DAYS
     Route: 048
  24. RAMIPRIL. [Concomitant]
     Active Substance: RAMIPRIL
     Dosage: 7.5 MG, 2 EVERY 1 DAYS
     Route: 048
  25. GABAPENTIN. [Suspect]
     Active Substance: GABAPENTIN
     Dosage: 600 MG, 2 EVERY 1 DAYS
     Route: 048
  26. CALCIUM CARBONATE. [Concomitant]
     Active Substance: CALCIUM CARBONATE
     Dosage: 500 MG, 1 EVERY 24 HOURS
     Route: 048
  27. CICLOPIROX. [Concomitant]
     Active Substance: CICLOPIROX
     Dosage: 1 DF, 2 EVERY 1 DAYS
     Route: 061
  28. ENOXAPARIN [Concomitant]
     Active Substance: ENOXAPARIN
     Dosage: 40 MG, 1 EVERY 12 HOURS
     Route: 058
  29. LOXAPINE. [Concomitant]
     Active Substance: LOXAPINE
     Dosage: 10 MG, 2 EVERY 1 DAYS
     Route: 048
  30. METFORMIN [Concomitant]
     Active Substance: METFORMIN HYDROCHLORIDE
     Dosage: 1000 MG, EVERY 24 HOURS
     Route: 048
  31. SALBUTAMOL [Concomitant]
     Active Substance: ALBUTEROL
     Indication: DYSPNOEA
     Dosage: 5 MG, 1 EVERY 1 HOURS
     Route: 055
  32. ACETAMINOPHEN. [Concomitant]
     Active Substance: ACETAMINOPHEN
     Dosage: 975 MG, 4 EVERY 1 DAYS
     Route: 048
  33. AMITRIPTYLINE [Concomitant]
     Active Substance: AMITRIPTYLINE
     Dosage: 25 MG, 1 EVERY 1 DAYS
     Route: 048
  34. AMLODIPINE [Concomitant]
     Active Substance: AMLODIPINE BESYLATE
     Dosage: 10 MG, 1 EVERY 24 HOURS
     Route: 048

REACTIONS (2)
  - C-reactive protein increased [Unknown]
  - Fall [Unknown]
